FAERS Safety Report 19159544 (Version 4)
Quarter: 2022Q3

REPORT INFORMATION
  Report Type: Spontaneous
  Country: US (occurrence: US)
  Receive Date: 20210420
  Receipt Date: 20220715
  Transmission Date: 20221026
  Serious: Yes (Disabling)
  Sender: FDA-Public Use
  Company Number: US-TEVA-2021-US-1899065

PATIENT
  Age: 49 Year
  Sex: Female
  Weight: 94.886 kg

DRUGS (5)
  1. DOCETAXEL [Suspect]
     Active Substance: DOCETAXEL
     Indication: Breast cancer female
     Dosage: DOSAGE: 160 MG, NUMBER OF CYCLES: 05, FREQUENCY: EVERY THREE WEEKS, FREQUENCY TIME : CYCLICAL
     Route: 065
     Dates: start: 20151005, end: 20151228
  2. PARAPLATIN [Concomitant]
     Active Substance: CARBOPLATIN
     Indication: Breast cancer female
     Dosage: NUMBER OF CYCLES: 05, FREQUENCY: EVERY THREE WEEKS, FREQUENCY TIME : CYCLICAL
     Route: 065
     Dates: start: 20151005, end: 20151228
  3. LISINOPRIL [Concomitant]
     Active Substance: LISINOPRIL
     Indication: Product used for unknown indication
     Dosage: ONGOING
     Route: 065
     Dates: start: 1994
  4. HYDROCHLOROTHIAZIDE\TRIAMTERENE [Concomitant]
     Active Substance: HYDROCHLOROTHIAZIDE\TRIAMTERENE
     Indication: Product used for unknown indication
     Dosage: ONGOING
     Route: 065
     Dates: start: 2014
  5. OMEPRAZOLE [Concomitant]
     Active Substance: OMEPRAZOLE
     Indication: Product used for unknown indication
     Dosage: ONGOING
     Route: 065
     Dates: start: 2014

REACTIONS (4)
  - Alopecia areata [Not Recovered/Not Resolved]
  - Madarosis [Not Recovered/Not Resolved]
  - Hair texture abnormal [Not Recovered/Not Resolved]
  - Hair colour changes [Not Recovered/Not Resolved]

NARRATIVE: CASE EVENT DATE: 20151001
